FAERS Safety Report 6695504 (Version 5)
Quarter: 2013Q1

REPORT INFORMATION
  Report Type: Spontaneous
  Country: US (occurrence: US)
  Receive Date: 20080626
  Receipt Date: 20130222
  Transmission Date: 20140127
  Serious: Yes (Hospitalization)
  Sender: FDA-Public Use
  Company Number: 2008BI015687

PATIENT
  Age: 47 Year
  Sex: Male

DRUGS (1)
  1. AVONEX [Suspect]
     Indication: MULTIPLE SCLEROSIS
     Route: 030
     Dates: start: 20080612, end: 20080612

REACTIONS (4)
  - Pyrexia [Recovered/Resolved]
  - Blindness [Recovered/Resolved]
  - Abasia [Recovered/Resolved]
  - Dehydration [Recovered/Resolved]
